FAERS Safety Report 15587066 (Version 1)
Quarter: 2018Q4

REPORT INFORMATION
  Report Type: Spontaneous
  Country: US (occurrence: US)
  Receive Date: 20181104
  Receipt Date: 20181104
  Transmission Date: 20190205
  Serious: Yes (Disabling)
  Sender: FDA-Public Use
  Company Number: None

PATIENT
  Age: 59 Year
  Sex: Female
  Weight: 81 kg

DRUGS (2)
  1. TRAMADOL 50MG [Suspect]
     Active Substance: TRAMADOL
  2. GAPAPENTINE ARROW [Suspect]
     Active Substance: GABAPENTIN
     Indication: PAIN
     Dosage: ?          QUANTITY:90 DF DOSAGE FORM;?
     Route: 048
     Dates: start: 20181023, end: 20181102

REACTIONS (10)
  - Disorientation [None]
  - Middle insomnia [None]
  - Skin exfoliation [None]
  - Hallucination [None]
  - Therapy cessation [None]
  - Headache [None]
  - Inadequate analgesia [None]
  - Memory impairment [None]
  - Dizziness [None]
  - Vomiting [None]

NARRATIVE: CASE EVENT DATE: 20181023
